FAERS Safety Report 20089967 (Version 1)
Quarter: 2021Q4

REPORT INFORMATION
  Report Type: Spontaneous
  Country: US (occurrence: US)
  Receive Date: 20211119
  Receipt Date: 20211119
  Transmission Date: 20220303
  Serious: No
  Sender: FDA-Public Use
  Company Number: US-NOVARTISTESTPH-NVSC2021US262849

PATIENT
  Sex: Female

DRUGS (1)
  1. NITROFURANTOIN [Suspect]
     Active Substance: NITROFURANTOIN
     Indication: Cystitis
     Dosage: 100 MG, BID
     Route: 065
     Dates: start: 20211111, end: 20211114

REACTIONS (3)
  - Nausea [Unknown]
  - Chills [Unknown]
  - Wrong technique in product usage process [Unknown]
